FAERS Safety Report 19237010 (Version 2)
Quarter: 2021Q2

REPORT INFORMATION
  Report Type: Spontaneous
  Country: DK (occurrence: DK)
  Receive Date: 20210510
  Receipt Date: 20210616
  Transmission Date: 20210717
  Serious: Yes (Death, Life-Threatening, Hospitalization)
  Sender: FDA-Public Use
  Company Number: DK-AUROBINDO-AUR-APL-2021-018525

PATIENT
  Age: 87 Year
  Sex: Female
  Weight: 56 kg

DRUGS (19)
  1. KODAMID ^DAK^ [Concomitant]
     Indication: PAIN
     Dosage: 1 DOSAGE FORM, AS NECESSARY (DOSAGE: MAX 1 TIME DAILY, STRENGTH: 250+9.6+50+150 MG)
     Route: 048
     Dates: start: 20180814, end: 20210105
  2. ULTIBRO BREEZHALER [Concomitant]
     Active Substance: GLYCOPYRRONIUM\INDACATEROL
     Indication: CHRONIC OBSTRUCTIVE PULMONARY DISEASE
     Dosage: 1 DOSAGE FORM, ONCE A DAY (STRENGTH: 85+43 ?G)
     Route: 055
     Dates: start: 20180508, end: 20201202
  3. FURIX [Concomitant]
     Indication: DIURETIC THERAPY
     Dosage: UNK (DOSAGE: 2 TABLETS MORNING, 1 TABLET EVENING, STRENGTH: 20 MG)
     Route: 048
     Dates: start: 20180108
  4. DUSPATALIN RETARD [Concomitant]
     Indication: IRRITABLE BOWEL SYNDROME
     Dosage: 400 MILLIGRAM, AS NECESSARY
     Route: 048
     Dates: start: 20181015, end: 20210224
  5. PRAMIPEXOLE AUROBINDO 0.088MG TABLETS [Suspect]
     Active Substance: PRAMIPEXOLE
     Indication: DYSKINESIA
     Dosage: 0.18 MILLIGRAM, ONCE A DAY
     Route: 048
     Dates: start: 20200225, end: 20200916
  6. KALEORID [Concomitant]
     Active Substance: POTASSIUM CHLORIDE
     Indication: MINERAL SUPPLEMENTATION
     Dosage: 1500 MILLIGRAM, ONCE A DAY
     Route: 048
     Dates: start: 20170405, end: 20210224
  7. SYMBICORT [Concomitant]
     Active Substance: BUDESONIDE\FORMOTEROL FUMARATE DIHYDRATE
     Indication: ASTHMA
     Dosage: 2 DOSAGE FORM, ONCE A DAY (STRENGTH: 4.5+160 ?G/DOSAGE)
     Route: 055
     Dates: start: 20140522, end: 20201202
  8. SERTRALINE [Concomitant]
     Active Substance: SERTRALINE HYDROCHLORIDE
     Indication: DEPRESSION
     Dosage: 50 MILLIGRAM, ONCE A DAY
     Route: 048
     Dates: start: 20170219, end: 20200714
  9. PANODIL [Concomitant]
     Active Substance: ACETAMINOPHEN
     Indication: PAIN
     Dosage: 4000 MILLIGRAM, ONCE A DAY
     Route: 048
     Dates: start: 20170515, end: 20210224
  10. IMODIUM [Concomitant]
     Active Substance: LOPERAMIDE HYDROCHLORIDE
     Indication: DIARRHOEA
     Dosage: 2 MILLIGRAM, AS NECESSARY (DOSAGE: MAX 2 TIMES DAILY, )
     Route: 048
     Dates: start: 20160510, end: 20210224
  11. BRICANYL [Concomitant]
     Active Substance: TERBUTALINE SULFATE
     Indication: BRONCHOSPASM
     Dosage: 0.5 MILLIGRAM, AS NECESSARY (DOSAGE: MAX 6 TIMES DAILY., STRENGTH: 0.5 MG/DOSAGE)
     Route: 055
     Dates: start: 20171128
  12. MILDIN [Concomitant]
     Indication: URTICARIA
     Dosage: 10 MILLIGRAM, AS NECESSARY
     Route: 048
     Dates: start: 20161101, end: 20210201
  13. CORDARONE [Concomitant]
     Active Substance: AMIODARONE HYDROCHLORIDE
     Indication: ATRIAL FIBRILLATION
     Dosage: UNK (DOSAGE: 1 TABLET MORNING AND 0.5 TABLET EVENING, STRENGTH: 200 MG)
     Route: 048
     Dates: start: 20150803, end: 20201119
  14. LERCATIO [Concomitant]
     Active Substance: LERCANIDIPINE HYDROCHLORIDE
     Indication: HYPERTENSION
     Dosage: 10 MILLIGRAM, ONCE A DAY
     Route: 048
     Dates: start: 20181122, end: 20200428
  15. XARELTO [Concomitant]
     Active Substance: RIVAROXABAN
     Indication: THROMBOSIS PROPHYLAXIS
     Dosage: 15 MILLIGRAM, ONCE A DAY
     Route: 048
     Dates: start: 20131212
  16. QUININE HYDROCHLORIDE [Concomitant]
     Active Substance: QUININE HYDROCHLORIDE
     Indication: MUSCLE SPASMS
     Dosage: 100 MILLIGRAM, AS NECESSARY
     Route: 048
     Dates: start: 20190613, end: 20200428
  17. ELTROXIN [Concomitant]
     Active Substance: LEVOTHYROXINE
     Indication: HYPOMETABOLISM
     Dosage: 50 MICROGRAM, ONCE A DAY
     Route: 048
     Dates: start: 20140918, end: 20210222
  18. HAIPREX [Concomitant]
     Indication: PROPHYLAXIS URINARY TRACT INFECTION
     Dosage: 1 GRAM, ONCE A DAY
     Route: 048
     Dates: start: 20190927, end: 20201215
  19. ATARAX [Concomitant]
     Active Substance: HYDROXYZINE HYDROCHLORIDE
     Indication: SEDATIVE THERAPY
     Dosage: 25 MILLIGRAM, AS NECESSARY (DOSAGE: MAX 3 TIMES DAILY. )
     Route: 048
     Dates: start: 20191105, end: 20200428

REACTIONS (1)
  - Weight decreased [Fatal]

NARRATIVE: CASE EVENT DATE: 202002
